FAERS Safety Report 25760649 (Version 1)
Quarter: 2025Q3

REPORT INFORMATION
  Report Type: Spontaneous
  Country: CA (occurrence: CA)
  Receive Date: 20250904
  Receipt Date: 20250904
  Transmission Date: 20251021
  Serious: Yes (Other)
  Sender: BAYER HEALTHCARE PHARMACEUTICALS INC.
  Company Number: CA-BAYER-2025A116848

PATIENT
  Age: 42 Year
  Sex: Male
  Weight: 122 kg

DRUGS (7)
  1. CIPROFLOXACIN [Suspect]
     Active Substance: CIPROFLOXACIN
  2. DIMENHYDRINATE [Suspect]
     Active Substance: DIMENHYDRINATE
  3. ZOPICLONE [Suspect]
     Active Substance: ZOPICLONE
     Route: 048
  4. IGIVNEX [Suspect]
     Active Substance: HUMAN IMMUNOGLOBULIN G
     Indication: Immune thrombocytopenia
     Dosage: 40 G, QD
     Route: 042
  5. HYDROMORPHONE [Suspect]
     Active Substance: HYDROMORPHONE
  6. TINZAPARIN [Suspect]
     Active Substance: TINZAPARIN
     Route: 042
  7. CITALOPRAM [Suspect]
     Active Substance: CITALOPRAM

REACTIONS (6)
  - Hyperhidrosis [Recovered/Resolved]
  - Hot flush [Recovered/Resolved]
  - Chest discomfort [Recovered/Resolved]
  - Chest pain [Recovered/Resolved]
  - Body temperature increased [Recovered/Resolved]
  - Electrocardiogram QT prolonged [Recovered/Resolved]
